FAERS Safety Report 7407004-5 (Version None)
Quarter: 2011Q2

REPORT INFORMATION
  Report Type: 
  Country: None (occurrence: None)
  Receive Date: 20110411
  Receipt Date: 20110401
  Transmission Date: 20111010
  Serious: No
  Sender: FDA-Public Use
  Company Number: US-PFIZER INC-2011074053

PATIENT
  Sex: Female

DRUGS (2)
  1. CRESTOR [Suspect]
  2. PRISTIQ [Suspect]
     Dosage: UNK

REACTIONS (1)
  - HIGH DENSITY LIPOPROTEIN [None]
